FAERS Safety Report 14845175 (Version 1)
Quarter: 2018Q2

REPORT INFORMATION
  Report Type: Spontaneous
  Country: DK (occurrence: DK)
  Receive Date: 20180504
  Receipt Date: 20180504
  Transmission Date: 20180711
  Serious: Yes (Other)
  Sender: FDA-Public Use
  Company Number: DK-TEVA-2018-DK-888645

PATIENT
  Age: 53 Year
  Sex: Male

DRUGS (1)
  1. LOSARTANKALIUM/HYDROCHLORTHIAZID ^TEVA^ [Suspect]
     Active Substance: HYDROCHLOROTHIAZIDE\LOSARTAN POTASSIUM
     Indication: HYPERTENSION
     Dosage: STYRKE: 50 + 12,5 MG.
     Route: 048
     Dates: start: 20100813, end: 20180126

REACTIONS (1)
  - Basosquamous carcinoma [Recovering/Resolving]

NARRATIVE: CASE EVENT DATE: 20160811
